APPROVED DRUG PRODUCT: FLUTICASONE PROPIONATE
Active Ingredient: FLUTICASONE PROPIONATE
Strength: 0.005%
Dosage Form/Route: OINTMENT;TOPICAL
Application: A215343 | Product #001
Applicant: BRIGHT FUTURE PHARMACEUTICAL LABORATORIES LTD
Approved: Sep 1, 2023 | RLD: No | RS: No | Type: DISCN